FAERS Safety Report 25726868 (Version 1)
Quarter: 2025Q3

REPORT INFORMATION
  Report Type: Other
  Country: US (occurrence: US)
  Receive Date: 20250826
  Receipt Date: 20250826
  Transmission Date: 20251020
  Serious: No
  Sender: SAGENT PHARMACEUTICALS
  Company Number: US-SAGENT PHARMACEUTICALS-2025SAG000037

PATIENT

DRUGS (4)
  1. HEPARIN SODIUM [Suspect]
     Active Substance: HEPARIN SODIUM
     Indication: Anticoagulant therapy
     Route: 022
  2. HEPARIN SODIUM [Suspect]
     Active Substance: HEPARIN SODIUM
     Route: 013
  3. HEPARIN SODIUM [Suspect]
     Active Substance: HEPARIN SODIUM
     Route: 022
  4. HEPARIN SODIUM [Suspect]
     Active Substance: HEPARIN SODIUM
     Route: 013

REACTIONS (2)
  - Therapeutic response decreased [Unknown]
  - Product quality issue [Unknown]
